FAERS Safety Report 14566489 (Version 1)
Quarter: 2018Q1

REPORT INFORMATION
  Report Type: Spontaneous
  Country: JP (occurrence: JP)
  Receive Date: 20180223
  Receipt Date: 20180223
  Transmission Date: 20180509
  Serious: Yes (Other)
  Sender: FDA-Public Use
  Company Number: JP-BAYER-2018-028974

PATIENT
  Age: 79 Year
  Sex: Male

DRUGS (2)
  1. ADALAT [Suspect]
     Active Substance: NIFEDIPINE
     Dosage: UNK
     Dates: start: 1988
  2. CLARITIN [Suspect]
     Active Substance: LORATADINE

REACTIONS (3)
  - Cerebral thrombosis [None]
  - Blood pressure increased [None]
  - Pruritus [None]

NARRATIVE: CASE EVENT DATE: 1998
